FAERS Safety Report 7391629-X (Version None)
Quarter: 2011Q2

REPORT INFORMATION
  Report Type: 
  Country: None (occurrence: None)
  Receive Date: 20110404
  Receipt Date: 20110324
  Transmission Date: 20111010
  Serious: Yes (Hospitalization)
  Sender: FDA-Public Use
  Company Number: US-AMGEN-USASP2011015953

PATIENT
  Age: 65 Year
  Sex: Female

DRUGS (1)
  1. ENBREL [Suspect]
     Indication: RHEUMATOID ARTHRITIS
     Dosage: 50 MG, QWK
     Dates: start: 20060901

REACTIONS (9)
  - THERAPEUTIC RESPONSE DECREASED [None]
  - SINUS CONGESTION [None]
  - ARTHRALGIA [None]
  - INJECTION SITE WARMTH [None]
  - INJECTION SITE SWELLING [None]
  - FATIGUE [None]
  - HEADACHE [None]
  - MYALGIA [None]
  - MUSCULAR WEAKNESS [None]
